FAERS Safety Report 9687284 (Version 3)
Quarter: 2013Q4

REPORT INFORMATION
  Report Type: Spontaneous
  Country: CN (occurrence: CN)
  Receive Date: 20131114
  Receipt Date: 20131125
  Transmission Date: 20140711
  Serious: Yes (Other)
  Sender: FDA-Public Use
  Company Number: CN-MERCK-1311CHN004788

PATIENT
  Age: 59 Year
  Sex: Male

DRUGS (1)
  1. SINGULAIR (LOCAL DIST) [Suspect]
     Indication: ASTHMA
     Dosage: UNK
     Route: 048
     Dates: start: 201303, end: 201309

REACTIONS (8)
  - Suicidal ideation [Recovered/Resolved]
  - Activities of daily living impaired [Unknown]
  - Loss of employment [Unknown]
  - Major depression [Not Recovered/Not Resolved]
  - Agoraphobia [Not Recovered/Not Resolved]
  - Anxiety [Not Recovered/Not Resolved]
  - Disorientation [Not Recovered/Not Resolved]
  - Depression [Not Recovered/Not Resolved]
